FAERS Safety Report 25536865 (Version 1)
Quarter: 2025Q3

REPORT INFORMATION
  Report Type: Spontaneous
  Country: JP (occurrence: JP)
  Receive Date: 20250710
  Receipt Date: 20250710
  Transmission Date: 20251020
  Serious: Yes (Other)
  Sender: TAKEDA
  Company Number: JP-TAKEDA-2025TJP006808

PATIENT
  Age: 4 Decade
  Sex: Male

DRUGS (2)
  1. ENTYVIO [Suspect]
     Active Substance: VEDOLIZUMAB
     Indication: Product used for unknown indication
  2. FILGOTINIB MALEATE [Concomitant]
     Active Substance: FILGOTINIB MALEATE

REACTIONS (2)
  - Encephalitis [Recovered/Resolved]
  - Laryngopharyngitis [Unknown]

NARRATIVE: CASE EVENT DATE: 20230601
